FAERS Safety Report 8208578-7 (Version None)
Quarter: 2012Q1

REPORT INFORMATION
  Report Type: 
  Country: None (occurrence: None)
  Receive Date: 20120314
  Receipt Date: 20110323
  Transmission Date: 20120608
  Serious: Yes (Hospitalization)
  Sender: FDA-Public Use
  Company Number: US-GLAXOSMITHKLINE-B0709554A

PATIENT
  Sex: Male

DRUGS (4)
  1. AVANDIA [Suspect]
     Indication: DIABETES MELLITUS
     Dosage: 8MG PER DAY
     Route: 048
     Dates: start: 20020101, end: 20090101
  2. LISINOPRIL AND HYDROCHLOROTHIAZIDE [Concomitant]
  3. TOPROL-XL [Concomitant]
  4. GLUCOVANCE [Concomitant]

REACTIONS (3)
  - CORONARY ARTERY DISEASE [None]
  - ATRIAL FLUTTER [None]
  - CARDIOVASCULAR DISORDER [None]
